FAERS Safety Report 18211142 (Version 2)
Quarter: 2020Q4

REPORT INFORMATION
  Report Type: Other
  Country: US (occurrence: US)
  Receive Date: 20200830
  Receipt Date: 20201218
  Transmission Date: 20210113
  Serious: Yes (Hospitalization)
  Sender: FDA-Public Use
  Company Number: US-ROCHE-2667900

PATIENT
  Age: 85 Year
  Sex: Male

DRUGS (16)
  1. TRAMADOL HCL [Concomitant]
     Active Substance: TRAMADOL HYDROCHLORIDE
  2. MULTAQ [Concomitant]
     Active Substance: DRONEDARONE
     Route: 048
  3. METOPROLOL TARTRATE. [Concomitant]
     Active Substance: METOPROLOL TARTRATE
  4. AMLODIPINE [Concomitant]
     Active Substance: AMLODIPINE BESYLATE
     Route: 048
  5. TRAMADOL. [Concomitant]
     Active Substance: TRAMADOL
     Route: 048
  6. ACETAMINOPHEN. [Concomitant]
     Active Substance: ACETAMINOPHEN
     Route: 048
  7. PROPAFENONE. [Concomitant]
     Active Substance: PROPAFENONE
  8. FEROSUL [Concomitant]
     Active Substance: FERROUS SULFATE
  9. CANNABIDIOL [Concomitant]
     Active Substance: CANNABIDIOL
     Route: 048
  10. PANTOPRAZOLE [Concomitant]
     Active Substance: PANTOPRAZOLE
     Route: 048
  11. ESBRIET [Suspect]
     Active Substance: PIRFENIDONE
     Indication: IDIOPATHIC PULMONARY FIBROSIS
     Dosage: 1 TAB, TID, PO, ONGOING: YES
     Route: 048
  12. ASPIRIN. [Concomitant]
     Active Substance: ASPIRIN
  13. ATORVASTATIN [Concomitant]
     Active Substance: ATORVASTATIN
  14. PANTOPRAZOLE [Concomitant]
     Active Substance: PANTOPRAZOLE
  15. XARELTO [Concomitant]
     Active Substance: RIVAROXABAN
  16. ACETAMINOPHEN. [Concomitant]
     Active Substance: ACETAMINOPHEN
     Route: 048

REACTIONS (1)
  - Supraventricular tachycardia [Recovered/Resolved]

NARRATIVE: CASE EVENT DATE: 20200624
